FAERS Safety Report 5396712-6 (Version None)
Quarter: 2007Q3

REPORT INFORMATION
  Report Type: 
  Country: None (occurrence: None)
  Receive Date: 20070725
  Receipt Date: 20060804
  Transmission Date: 20080115
  Serious: No
  Sender: FDA-Public Use
  Company Number: US-AMGEN-KDL189026

PATIENT
  Sex: Male

DRUGS (10)
  1. EPOGEN [Suspect]
     Indication: DIALYSIS
     Route: 058
     Dates: start: 20060701, end: 20060801
  2. GLIPIZIDE [Concomitant]
  3. NEPHRO-VITE [Concomitant]
  4. RENAGEL [Concomitant]
  5. LIPITOR [Concomitant]
  6. MINOXIDIL [Concomitant]
  7. ATENOLOL [Concomitant]
  8. NIFEDIPINE [Concomitant]
  9. PRILOSEC [Concomitant]
  10. ASPIRIN [Concomitant]

REACTIONS (1)
  - HAEMATOCRIT DECREASED [None]
